FAERS Safety Report 9301524 (Version 1)
Quarter: 2013Q2

REPORT INFORMATION
  Report Type: Spontaneous
  Country: US (occurrence: US)
  Receive Date: 20130521
  Receipt Date: 20130521
  Transmission Date: 20140414
  Serious: Yes (Hospitalization)
  Sender: FDA-Public Use
  Company Number: US-BAYER-2013-061857

PATIENT
  Age: 16 Year
  Sex: Female
  Weight: 72.06 kg

DRUGS (12)
  1. BEYAZ [Suspect]
  2. CLONIDINE [Concomitant]
     Indication: INSOMNIA
     Dosage: 0.2 MG, EVERY DAY
     Route: 048
  3. LEXAPRO [Concomitant]
     Dosage: 10 MG, EVERY DAY
     Route: 048
  4. PRILOSEC [Concomitant]
     Dosage: 20 MG, EVERY DAY
     Route: 048
  5. VENTOLIN HFA [Concomitant]
     Dosage: 90 MCG/ ACTUATION, 2 PUFFS EVERY 4 HOURS IF NEEDED
     Route: 045
  6. IBUPROFEN [Concomitant]
     Dosage: 400 MG, EVERY 6-8 HOURS AS NEEDED
     Route: 048
  7. TOPIRAMATE [Concomitant]
     Dosage: 25 MG, UNK
  8. ABILIFY [Concomitant]
     Dosage: UNK, ONCE DAILY
     Route: 048
  9. CATAFLAM [Concomitant]
     Dosage: 50 MG, UNK
     Route: 048
  10. ZITHROMAX [Concomitant]
     Dosage: 500 MG ONCE DAILY FOR 1 DAY THEN 250 MG ONCE DAILY FOR 4 DAYS
     Route: 048
  11. CYMBALTA [Concomitant]
     Dosage: 60 MG, EVERY DAY
     Route: 048
  12. ZYRTEC [Concomitant]

REACTIONS (1)
  - Pulmonary embolism [Recovered/Resolved]
